FAERS Safety Report 12942425 (Version 1)
Quarter: 2016Q4

REPORT INFORMATION
  Report Type: Spontaneous
  Country: US (occurrence: US)
  Receive Date: 20161115
  Receipt Date: 20161115
  Transmission Date: 20170207
  Serious: No
  Sender: FDA-Public Use
  Company Number: US-JNJFOC-20161016862

PATIENT
  Age: 16 Year
  Sex: Male

DRUGS (1)
  1. INVEGA SUSTENNA [Suspect]
     Active Substance: PALIPERIDONE PALMITATE
     Indication: PRODUCT USED FOR UNKNOWN INDICATION
     Route: 030

REACTIONS (6)
  - Product use issue [Unknown]
  - Psychotic disorder [Unknown]
  - Hallucination, visual [Unknown]
  - Treatment noncompliance [Unknown]
  - Off label use [Unknown]
  - Abnormal behaviour [Unknown]
